FAERS Safety Report 8503540-9 (Version None)
Quarter: 2012Q3

REPORT INFORMATION
  Report Type: 
  Country: None (occurrence: None)
  Receive Date: 20120711
  Receipt Date: 20120706
  Transmission Date: 20120928
  Serious: No
  Sender: FDA-Public Use
  Company Number: US-PFIZER INC-2012146091

PATIENT
  Sex: Male

DRUGS (3)
  1. CIPROFLOXACIN [Concomitant]
     Dosage: UNK
  2. VFEND [Suspect]
     Indication: SINUSITIS FUNGAL
     Dosage: 200 MG, 2X/DAY
     Route: 048
     Dates: start: 20120323, end: 20120522
  3. BACTRIM [Concomitant]
     Dosage: UNK

REACTIONS (3)
  - ERYTHEMA [None]
  - PHOTOSENSITIVITY REACTION [None]
  - BLISTER [None]
